FAERS Safety Report 6700888-5 (Version None)
Quarter: 2010Q2

REPORT INFORMATION
  Report Type: 
  Country: None (occurrence: None)
  Receive Date: 20100428
  Receipt Date: 20100414
  Transmission Date: 20101027
  Serious: Yes (Hospitalization)
  Sender: FDA-Public Use
  Company Number: GB-MYLANLABS-2010S1006386

PATIENT
  Age: 49 Year
  Sex: Male
  Weight: 95 kg

DRUGS (2)
  1. RISPERIDONE [Suspect]
     Indication: MENTAL DISORDER
     Dates: start: 20091124, end: 20100103
  2. PROPRANOLOL [Concomitant]
     Indication: MENTAL DISORDER
     Route: 048
     Dates: start: 20090928

REACTIONS (4)
  - HEADACHE [None]
  - SOMNOLENCE [None]
  - SYNCOPE [None]
  - WITHDRAWAL SYNDROME [None]
